FAERS Safety Report 8774512 (Version 5)
Quarter: 2013Q1

REPORT INFORMATION
  Report Type: Report from Study
  Country: US (occurrence: US)
  Receive Date: 20120907
  Receipt Date: 20130118
  Transmission Date: 20140127
  Serious: Yes (Hospitalization)
  Sender: FDA-Public Use
  Company Number: US-EISAI INC-E7389-02959-CLI-US

PATIENT
  Age: 47 Year
  Sex: Male
  Weight: 114 kg

DRUGS (5)
  1. E7389 (BOLD) [Suspect]
     Indication: SARCOMA
     Route: 041
     Dates: start: 20120809, end: 20120820
  2. EXFORGE HCT [Concomitant]
     Indication: HYPERTENSION
     Route: 048
     Dates: start: 2009
  3. XARELTO [Concomitant]
     Indication: ANTICOAGULANT THERAPY
     Route: 048
     Dates: start: 20120720
  4. DILTIAZEM [Concomitant]
     Indication: HYPERTENSION
     Route: 048
     Dates: start: 20120720
  5. TYLENOL [Concomitant]

REACTIONS (4)
  - Anaemia [Not Recovered/Not Resolved]
  - Febrile neutropenia [Recovered/Resolved]
  - Asthenia [Recovering/Resolving]
  - Renal failure acute [Recovering/Resolving]
